FAERS Safety Report 13210222 (Version 1)
Quarter: 2017Q1

REPORT INFORMATION
  Report Type: Spontaneous
  Country: US (occurrence: US)
  Receive Date: 20170209
  Receipt Date: 20170209
  Transmission Date: 20170428
  Serious: No
  Sender: FDA-Public Use
  Company Number: US-ACTELION-A-NJ2017-149191

PATIENT
  Age: 70 Year
  Sex: Female
  Weight: 60.32 kg

DRUGS (2)
  1. UPTRAVI [Suspect]
     Active Substance: SELEXIPAG
     Indication: PULMONARY HYPERTENSION
     Dosage: 200 MCG, BID
     Route: 048
     Dates: start: 20170119
  2. REVATIO [Concomitant]
     Active Substance: SILDENAFIL CITRATE

REACTIONS (9)
  - Nausea [Unknown]
  - Toothache [Unknown]
  - Headache [Unknown]
  - Pain in jaw [Unknown]
  - Flushing [Unknown]
  - Arthralgia [Unknown]
  - Pain in extremity [Unknown]
  - Drug intolerance [Unknown]
  - Dizziness [Unknown]
